FAERS Safety Report 25140932 (Version 1)
Quarter: 2025Q1

REPORT INFORMATION
  Report Type: Spontaneous
  Country: JP (occurrence: JP)
  Receive Date: 20250331
  Receipt Date: 20250331
  Transmission Date: 20250408
  Serious: Yes (Hospitalization)
  Sender: MERCK SHARP & DOHME LLC
  Company Number: JP-MSD-2411JPN004030J

PATIENT
  Age: 66 Year
  Sex: Male
  Weight: 48.8 kg

DRUGS (9)
  1. KEYTRUDA [Suspect]
     Active Substance: PEMBROLIZUMAB
     Indication: Lung adenocarcinoma stage IV
     Route: 041
     Dates: start: 20240201, end: 20240808
  2. BETAMETHASONE DIPROPIONATE [Concomitant]
     Active Substance: BETAMETHASONE DIPROPIONATE
     Indication: Rash
     Route: 065
     Dates: start: 20240221
  3. LORATADINE [Concomitant]
     Active Substance: LORATADINE
     Indication: Rash
     Route: 065
     Dates: start: 20240222
  4. DEXTROMETHORPHAN [Concomitant]
     Active Substance: DEXTROMETHORPHAN
     Indication: Prophylaxis
     Route: 065
     Dates: start: 20240221
  5. LOCOID [Concomitant]
     Active Substance: HYDROCORTISONE BUTYRATE
     Indication: Rash
     Route: 065
     Dates: start: 20240226
  6. AMLODIPINE BESYLATE [Concomitant]
     Active Substance: AMLODIPINE BESYLATE
     Indication: Hypertension
     Route: 065
     Dates: start: 20240404
  7. ESOMEPRAZOLE MAGNESIUM [Concomitant]
     Active Substance: ESOMEPRAZOLE MAGNESIUM
     Indication: Prophylaxis
     Route: 065
     Dates: start: 20240829
  8. BONALON [Concomitant]
     Active Substance: ALENDRONATE SODIUM
     Indication: Prophylaxis
     Route: 065
     Dates: start: 20240829
  9. CODEINE PHOSPHATE [Concomitant]
     Active Substance: CODEINE PHOSPHATE
     Indication: Prophylaxis
     Route: 065
     Dates: start: 20240227

REACTIONS (1)
  - Renal injury [Not Recovered/Not Resolved]

NARRATIVE: CASE EVENT DATE: 20240801
